FAERS Safety Report 19305724 (Version 1)
Quarter: 2021Q2

REPORT INFORMATION
  Report Type: Spontaneous
  Country: CN (occurrence: CN)
  Receive Date: 20210525
  Receipt Date: 20210525
  Transmission Date: 20210717
  Serious: Yes (Life-Threatening, Hospitalization)
  Sender: FDA-Public Use
  Company Number: CN-DSJP-DSJ-2021-115428AA

PATIENT
  Age: 71 Year
  Sex: Female

DRUGS (2)
  1. SPIRONOLACTONE. [Concomitant]
     Active Substance: SPIRONOLACTONE
     Indication: OEDEMA PERIPHERAL
     Dosage: 40 MG, DAY
     Route: 048
     Dates: start: 20210426, end: 20210510
  2. OLMESARTAN AND AMLODIPINE [Suspect]
     Active Substance: AMLODIPINE BESYLATE\OLMESARTAN MEDOXOMIL
     Indication: HYPERTENSION
     Dosage: 25MG, DAY
     Route: 048
     Dates: start: 20210426, end: 20210510

REACTIONS (2)
  - Hypotension [Recovering/Resolving]
  - Vertebrobasilar insufficiency [Recovering/Resolving]

NARRATIVE: CASE EVENT DATE: 20210510
